FAERS Safety Report 20335441 (Version 2)
Quarter: 2022Q1

REPORT INFORMATION
  Report Type: Report from Study
  Country: DE (occurrence: DE)
  Receive Date: 20220114
  Receipt Date: 20220126
  Transmission Date: 20220423
  Serious: Yes (Other)
  Sender: FDA-Public Use
  Company Number: DE-LEO Pharma-340542

PATIENT
  Age: 76 Year
  Sex: Male

DRUGS (2)
  1. TRALOKINUMAB [Suspect]
     Active Substance: TRALOKINUMAB
     Indication: Dermatitis atopic
     Dosage: DOSAGE : 4X 150 MG / PRE-FILLED INJECTION ONCE
     Route: 058
     Dates: start: 20211223, end: 20211223
  2. DEVICE [Suspect]
     Active Substance: DEVICE
     Indication: Dermatitis atopic

REACTIONS (4)
  - Blister [Unknown]
  - Pruritus [Unknown]
  - Blister [Unknown]
  - Pruritus [Unknown]

NARRATIVE: CASE EVENT DATE: 20211227
